FAERS Safety Report 8537363-1 (Version None)
Quarter: 2012Q3

REPORT INFORMATION
  Report Type: 
  Country: None (occurrence: None)
  Receive Date: 20120725
  Receipt Date: 20120718
  Transmission Date: 20120928
  Serious: No
  Sender: FDA-Public Use
  Company Number: US-B.I. PHARMACEUTICALS,INC./RIDGEFIELD-2012-BP-16044BP

PATIENT
  Sex: Female

DRUGS (13)
  1. ATACAND [Concomitant]
     Indication: HYPERTENSION
     Dosage: 16 MG
     Route: 048
     Dates: start: 20100101
  2. CARVEDILOL [Concomitant]
     Indication: HYPERTENSION
     Dosage: 37.5 MG
     Route: 048
     Dates: start: 20110101
  3. ADVAIR DISKUS 100/50 [Concomitant]
     Indication: CHRONIC OBSTRUCTIVE PULMONARY DISEASE
     Dosage: 2 PUF
     Route: 055
     Dates: start: 20100101
  4. PRILOSEC [Concomitant]
     Indication: GASTROOESOPHAGEAL REFLUX DISEASE
     Dosage: 40 MG
     Route: 048
     Dates: start: 20120301
  5. VYTORIN [Concomitant]
     Indication: BLOOD CHOLESTEROL INCREASED
     Route: 048
     Dates: start: 20080101
  6. WELLBUTRIN [Concomitant]
     Indication: DEPRESSION
     Dosage: 200 MG
     Route: 048
     Dates: start: 20020101
  7. HYDRALAZINE HCL [Concomitant]
     Indication: HYPERTENSION
     Dosage: 200 MG
     Route: 048
     Dates: start: 20120501
  8. LEVOTHYROXINE SODIUM [Concomitant]
     Indication: HYPOTHYROIDISM
     Dosage: 88 MCG
     Route: 048
     Dates: start: 19980101
  9. SPIRIVA [Suspect]
     Indication: CHRONIC OBSTRUCTIVE PULMONARY DISEASE
     Dosage: 18 MCG
     Route: 055
     Dates: start: 20120622
  10. LOVAZA [Concomitant]
     Indication: PROPHYLAXIS
     Route: 048
     Dates: start: 20070101
  11. LISINOPRIL [Concomitant]
     Indication: HYPERTENSION
     Dosage: 120 MG
     Route: 048
     Dates: start: 20110101
  12. PLAVIX [Concomitant]
     Indication: PERIPHERAL VASCULAR DISORDER
     Dosage: 75 MG
     Route: 048
     Dates: start: 20080101
  13. OXYGEN [Concomitant]
     Indication: DYSPNOEA
     Route: 045
     Dates: start: 20120622

REACTIONS (2)
  - DRY MOUTH [None]
  - AGEUSIA [None]
